FAERS Safety Report 6998776-2 (Version None)
Quarter: 2010Q3

REPORT INFORMATION
  Report Type: 
  Country: None (occurrence: None)
  Receive Date: 20100920
  Receipt Date: 20100610
  Transmission Date: 20110219
  Serious: No
  Sender: FDA-Public Use
  Company Number: US-ASTRAZENECA-2010SE03447

PATIENT
  Age: 19374 Day
  Sex: Male
  Weight: 90.7 kg

DRUGS (5)
  1. SEROQUEL [Suspect]
     Indication: ANXIETY
     Dosage: 300MG TOTAL DAILY DOSE
     Route: 048
  2. SEROQUEL [Suspect]
     Indication: DEPRESSION
     Dosage: 300MG TOTAL DAILY DOSE
     Route: 048
  3. SEROQUEL [Suspect]
     Route: 048
     Dates: start: 20050101
  4. SEROQUEL [Suspect]
     Route: 048
     Dates: start: 20050101
  5. METHADONE [Concomitant]
     Route: 048

REACTIONS (6)
  - ALCOHOL DETOXIFICATION [None]
  - ANXIETY [None]
  - FALL [None]
  - INCORRECT DOSE ADMINISTERED [None]
  - INSOMNIA [None]
  - LIMB INJURY [None]
